FAERS Safety Report 25430077 (Version 1)
Quarter: 2025Q2

REPORT INFORMATION
  Report Type: Report from Study
  Country: US (occurrence: US)
  Receive Date: 20250612
  Receipt Date: 20250612
  Transmission Date: 20250717
  Serious: Yes (Death, Hospitalization)
  Sender: NOVARTIS
  Company Number: US-002147023-NVSC2025US074441

PATIENT
  Sex: Male
  Weight: 128.4 kg

DRUGS (1)
  1. ENTRESTO [Suspect]
     Active Substance: SACUBITRIL\VALSARTAN
     Indication: Cardiomyopathy
     Route: 048

REACTIONS (5)
  - Septic shock [Fatal]
  - Acute respiratory distress syndrome [Unknown]
  - Pneumonia [Unknown]
  - Pneumonia aspiration [Unknown]
  - Product use in unapproved indication [Unknown]
